FAERS Safety Report 5057994-3 (Version None)
Quarter: 2006Q3

REPORT INFORMATION
  Report Type: 
  Country: None (occurrence: None)
  Receive Date: 20060721
  Receipt Date: 20060504
  Transmission Date: 20061208
  Serious: No
  Sender: FDA-Public Use
  Company Number: US-GLAXOSMITHKLINE-A0604399A

PATIENT
  Sex: Female

DRUGS (6)
  1. AVANDIA [Suspect]
     Dosage: .5TAB PER DAY
     Route: 048
     Dates: start: 20060301
  2. METFORMIN [Suspect]
     Indication: DRUG USE FOR UNKNOWN INDICATION
  3. SATOLOL [Concomitant]
  4. DIGITEK [Concomitant]
  5. WARFARIN SODIUM [Concomitant]
  6. LEVOXYL [Concomitant]

REACTIONS (2)
  - BLOOD GLUCOSE INCREASED [None]
  - DIARRHOEA [None]
